FAERS Safety Report 19823395 (Version 1)
Quarter: 2021Q3

REPORT INFORMATION
  Report Type: Spontaneous
  Country: US (occurrence: US)
  Receive Date: 20210913
  Receipt Date: 20210913
  Transmission Date: 20211014
  Serious: No
  Sender: FDA-Public Use
  Company Number: US-GALDERMA-US2021015934

PATIENT

DRUGS (6)
  1. PROACTIV MD ULTRA HYDRATING MOISTURIZER [Concomitant]
     Dosage: 1 DOSAGE FORM, BID, DAILY
     Route: 061
     Dates: start: 202107, end: 202108
  2. PROACTIV MD ADAPALENE ACNE TREATMENT [Suspect]
     Active Substance: ADAPALENE
     Indication: ACNE
     Dosage: 1 DOSAGE FORM, QD, DAILY
     Route: 061
     Dates: start: 202106, end: 202107
  3. PROACTIV MD ADAPALENE ACNE TREATMENT [Suspect]
     Active Substance: ADAPALENE
     Dosage: 1 DOSAGE FORM, DAILY
     Route: 061
     Dates: start: 202107, end: 202108
  4. PROACTIV MD ULTRA GENTLE CLEANSER [Concomitant]
     Dosage: 1 DOSAGE FORM, BID, DAILY
     Route: 061
     Dates: start: 202107, end: 202108
  5. PROACTIV MD ULTRA HYDRATING MOISTURIZER [Concomitant]
     Indication: ACNE
     Dosage: 1 DOSAGE FORM, BID, DAILY
     Route: 061
     Dates: start: 202106, end: 202107
  6. PROACTIV MD ULTRA GENTLE CLEANSER [Concomitant]
     Indication: ACNE
     Dosage: 1 DOSAGE FORM, BID, DAILY
     Route: 061
     Dates: start: 202106, end: 202107

REACTIONS (2)
  - Acne [Recovered/Resolved]
  - Hypersensitivity [Recovered/Resolved]

NARRATIVE: CASE EVENT DATE: 202107
